FAERS Safety Report 24461192 (Version 1)
Quarter: 2024Q4

REPORT INFORMATION
  Report Type: Spontaneous
  Country: IT (occurrence: IT)
  Receive Date: 20241018
  Receipt Date: 20241018
  Transmission Date: 20250114
  Serious: No
  Sender: ROCHE
  Company Number: None

PATIENT
  Age: 65 Year
  Sex: Female
  Weight: 70.0 kg

DRUGS (5)
  1. RITUXIMAB [Suspect]
     Active Substance: RITUXIMAB
     Indication: Rheumatoid arthritis
     Route: 065
     Dates: start: 20160713, end: 20240131
  2. PANTOPRAZOLE SODIUM [Concomitant]
     Active Substance: PANTOPRAZOLE SODIUM
  3. ANNOVA [Concomitant]
  4. OLMESARTAN MEDOXOMIL [Concomitant]
     Active Substance: OLMESARTAN MEDOXOMIL
  5. BINOSTO [Concomitant]
     Active Substance: ALENDRONATE SODIUM

REACTIONS (4)
  - Drug ineffective [Unknown]
  - Arthritis [Recovering/Resolving]
  - B-lymphocyte count decreased [Recovering/Resolving]
  - Musculoskeletal stiffness [Recovering/Resolving]

NARRATIVE: CASE EVENT DATE: 20240122
